FAERS Safety Report 14204778 (Version 1)
Quarter: 2017Q4

REPORT INFORMATION
  Report Type: Spontaneous
  Country: US (occurrence: US)
  Receive Date: 20171120
  Receipt Date: 20171120
  Transmission Date: 20180321
  Serious: No
  Sender: FDA-Public Use
  Company Number: US-GLAXOSMITHKLINE-US2017176388

PATIENT
  Sex: Female

DRUGS (3)
  1. BREO ELLIPTA [Suspect]
     Active Substance: FLUTICASONE FUROATE\VILANTEROL TRIFENATATE
     Indication: ASTHMA
  2. SYNTHROID [Concomitant]
     Active Substance: LEVOTHYROXINE SODIUM
  3. BREO ELLIPTA [Suspect]
     Active Substance: FLUTICASONE FUROATE\VILANTEROL TRIFENATATE
     Indication: WHEEZING
     Dosage: 1 PUFF(S), QD
     Route: 055
     Dates: start: 201710, end: 2017

REACTIONS (5)
  - Throat tightness [Unknown]
  - Drug ineffective [Unknown]
  - Dysphonia [Unknown]
  - Dyspnoea [Unknown]
  - Asthma [Unknown]
